FAERS Safety Report 16337108 (Version 2)
Quarter: 2019Q3

REPORT INFORMATION
  Report Type: Spontaneous
  Country: US (occurrence: US)
  Receive Date: 20190521
  Receipt Date: 20190909
  Transmission Date: 20191004
  Serious: No
  Sender: FDA-Public Use
  Company Number: US-PFIZER INC-2018354408

PATIENT
  Age: 55 Year
  Sex: Male
  Weight: 113 kg

DRUGS (28)
  1. LYRICA [Suspect]
     Active Substance: PREGABALIN
     Indication: BACK INJURY
  2. DILAUDID [Concomitant]
     Active Substance: HYDROMORPHONE HYDROCHLORIDE
     Indication: PAIN
  3. HYDROMORPHONE [Concomitant]
     Active Substance: HYDROMORPHONE
     Indication: PAIN
     Dosage: 4 MG, 2X/DAY
     Route: 048
  4. MORPHINE [Concomitant]
     Active Substance: MORPHINE
     Dosage: UNK
  5. DILAUDID [Concomitant]
     Active Substance: HYDROMORPHONE HYDROCHLORIDE
     Indication: BACK PAIN
     Dosage: 4 MG, 2X/DAY (4 MG TABLET BY MOUTH TWICE A DAY)
     Route: 048
  6. METHADONE [Concomitant]
     Active Substance: METHADONE HYDROCHLORIDE
     Dosage: 10 MG, UNK
  7. NEURONTIN [Concomitant]
     Active Substance: GABAPENTIN
     Dosage: UNK
  8. DILAUDID [Concomitant]
     Active Substance: HYDROMORPHONE HYDROCHLORIDE
     Indication: SCIATICA
  9. LASIX [Concomitant]
     Active Substance: FUROSEMIDE
     Dosage: 40 MG, UNK
  10. NITROGLYCERIN. [Concomitant]
     Active Substance: NITROGLYCERIN
     Dosage: UNK
  11. ASPIRIN [ACETYLSALICYLIC ACID] [Concomitant]
     Active Substance: ASPIRIN
     Dosage: 81 MG, 1X/DAY
  12. PLAVIX [Concomitant]
     Active Substance: CLOPIDOGREL BISULFATE
     Dosage: 75 MG, UNK
  13. LYRICA [Suspect]
     Active Substance: PREGABALIN
     Indication: PAIN
  14. DILAUDID [Concomitant]
     Active Substance: HYDROMORPHONE HYDROCHLORIDE
     Indication: BACK INJURY
  15. METOPROLOL. [Concomitant]
     Active Substance: METOPROLOL
     Dosage: 50 MG, UNK
  16. PRALUENT [Concomitant]
     Active Substance: ALIROCUMAB
     Dosage: UNK
  17. LYRICA [Suspect]
     Active Substance: PREGABALIN
     Indication: BACK PAIN
     Dosage: 75 MG, 2X/DAY(75MG BY MOUTH TWICE A DAY ONE IN MORNING ONE AT NIGHT)
     Route: 048
     Dates: start: 20160321
  18. BRILINTA [Concomitant]
     Active Substance: TICAGRELOR
     Dosage: UNK
  19. SIMVASTATIN. [Concomitant]
     Active Substance: SIMVASTATIN
     Dosage: 20 MG, UNK
  20. OXYCODONE [Concomitant]
     Active Substance: OXYCODONE
     Dosage: UNK
  21. COQ10 [UBIDECARENONE] [Concomitant]
     Active Substance: UBIDECARENONE
     Dosage: UNK
  22. REPATHA [Concomitant]
     Active Substance: EVOLOCUMAB
     Dosage: UNK
  23. PROTONIX [OMEPRAZOLE] [Concomitant]
     Active Substance: OMEPRAZOLE
     Dosage: 40 MG, 2X/DAY
  24. FLECAINIDE [Concomitant]
     Active Substance: FLECAINIDE
     Dosage: 50 MG, UNK
  25. OPANA [Concomitant]
     Active Substance: OXYMORPHONE HYDROCHLORIDE
     Dosage: UNK
  26. LYRICA [Suspect]
     Active Substance: PREGABALIN
     Indication: SCIATICA
  27. LISINOPRIL. [Concomitant]
     Active Substance: LISINOPRIL
     Dosage: 25 MG, UNK
  28. PHENERGAN [Concomitant]
     Active Substance: PROMETHAZINE HYDROCHLORIDE
     Dosage: 25 MG, UNK

REACTIONS (1)
  - Sciatica [Unknown]
